FAERS Safety Report 11686549 (Version 6)
Quarter: 2016Q1

REPORT INFORMATION
  Report Type: Spontaneous
  Country: JP (occurrence: JP)
  Receive Date: 20151030
  Receipt Date: 20160316
  Transmission Date: 20160525
  Serious: Yes (Other)
  Sender: FDA-Public Use
  Company Number: JP-GILEAD-2015-0178832

PATIENT
  Age: 73 Year
  Sex: Male
  Weight: 59 kg

DRUGS (5)
  1. REBETOL [Suspect]
     Active Substance: RIBAVIRIN
     Indication: HEPATITIS C
     Dosage: 600 MG, AFTER BREAKFAST 1 TAB, AFTER DINNER 2 TABS
     Route: 048
     Dates: start: 20150905, end: 20151022
  2. BETANIS [Concomitant]
     Active Substance: MIRABEGRON
     Indication: GENITOURINARY SYMPTOM
     Dosage: UNK
     Route: 048
  3. STAYBLA [Concomitant]
     Active Substance: IMIDAFENACIN
     Indication: GENITOURINARY SYMPTOM
     Dosage: UNK
     Route: 048
  4. SOVALDI [Suspect]
     Active Substance: SOFOSBUVIR
     Indication: HEPATITIS C
     Dosage: 400 MG, AFTER BREAKFAST, 1 TAB
     Route: 048
     Dates: start: 20150905, end: 20151022
  5. FERROMIA [Concomitant]
     Active Substance: FERROUS CITRATE
     Indication: IRON DEFICIENCY ANAEMIA
     Dosage: 100 MG, UNK
     Route: 048

REACTIONS (6)
  - Hepatitis [Unknown]
  - Drug ineffective [Unknown]
  - Alanine aminotransferase increased [Not Recovered/Not Resolved]
  - Upper respiratory tract inflammation [Recovered/Resolved]
  - Pneumonia [Recovering/Resolving]
  - Cough [Recovering/Resolving]

NARRATIVE: CASE EVENT DATE: 20151001
